FAERS Safety Report 6293146-7 (Version None)
Quarter: 2009Q3

REPORT INFORMATION
  Report Type: 
  Country: None (occurrence: None)
  Receive Date: 20090731
  Receipt Date: 20090608
  Transmission Date: 20100115
  Serious: Yes (Other)
  Sender: FDA-Public Use
  Company Number: US-PURDUE-USA-2009-0039003

PATIENT
  Sex: Female

DRUGS (2)
  1. OXYCONTIN [Suspect]
     Indication: BACK PAIN
     Dosage: 240 MG, BID
     Route: 048
     Dates: start: 20010508, end: 20060621
  2. OXYCONTIN [Suspect]
     Indication: NECK PAIN

REACTIONS (19)
  - CARDIAC DISORDER [None]
  - CATARACT [None]
  - CHILLS [None]
  - CONSTIPATION [None]
  - DRUG DETOXIFICATION [None]
  - HYPERHIDROSIS [None]
  - HYPERTENSION [None]
  - INSOMNIA [None]
  - NAUSEA [None]
  - PRURITUS [None]
  - RASH [None]
  - SJOGREN'S SYNDROME [None]
  - SOMNAMBULISM [None]
  - SOMNOLENCE [None]
  - THYROID DISORDER [None]
  - TOOTH DISORDER [None]
  - ULCER [None]
  - WEIGHT INCREASED [None]
  - WITHDRAWAL SYNDROME [None]
